FAERS Safety Report 6682036-3 (Version None)
Quarter: 2010Q2

REPORT INFORMATION
  Report Type: 
  Country: None (occurrence: None)
  Receive Date: 20100414
  Receipt Date: 20100414
  Transmission Date: 20101027
  Serious: Yes (Other)
  Sender: FDA-Public Use
  Company Number: None

PATIENT
  Age: 50 Year
  Sex: Female
  Weight: 92.9874 kg

DRUGS (1)
  1. LOVAZA [Suspect]
     Indication: BLOOD TRIGLYCERIDES INCREASED
     Dosage: 2 CAPSULES 2X DAILY = 4 DAILY PO
     Route: 048
     Dates: start: 20100301, end: 20100401

REACTIONS (2)
  - DECREASED ACTIVITY [None]
  - FATIGUE [None]
